FAERS Safety Report 6988564-5 (Version None)
Quarter: 2010Q3

REPORT INFORMATION
  Report Type: 
  Country: None (occurrence: None)
  Receive Date: 20100916
  Receipt Date: 20100908
  Transmission Date: 20110219
  Serious: Yes (Other)
  Sender: FDA-Public Use
  Company Number: FR-BRISTOL-MYERS SQUIBB COMPANY-15278245

PATIENT
  Age: 45 Year
  Sex: Male

DRUGS (1)
  1. REYATAZ [Suspect]
     Dosage: DURATION:2-3 YEARS

REACTIONS (2)
  - ANURIA [None]
  - NEPHROLITHIASIS [None]
